FAERS Safety Report 8781872 (Version 1)
Quarter: 2012Q4

REPORT INFORMATION
  Report Type: 
  Country: US (occurrence: US)
  Receive Date: 20120913
  Receipt Date: 20120913
  Transmission Date: 20130627
  Serious: No
  Sender: FDA-Public Use
  Company Number: US-VERTEX PHARMACEUTICAL INC.-2012-020179

PATIENT
  Sex: Male
  Weight: 99 kg

DRUGS (8)
  1. VX-950 [Suspect]
     Indication: HEPATITIS C
     Dosage: 750 mg, UNK
     Route: 048
     Dates: start: 2012
  2. PEGASYS [Concomitant]
     Indication: HEPATITIS C
     Dosage: 180 ?g, UNK
     Route: 058
     Dates: start: 2012
  3. RIBAPAK [Concomitant]
     Indication: HEPATITIS C
     Dosage: 800 mg, bid
     Route: 048
     Dates: start: 2012
  4. ALDACTONE                          /00006201/ [Concomitant]
     Dosage: 50 mg, UNK
     Route: 048
  5. TEKTURNA [Concomitant]
     Dosage: 150 mg, UNK
     Route: 048
  6. NOVOLOG [Concomitant]
     Dosage: 4 UNK, UNK
     Route: 058
  7. NEXIUM                             /01479302/ [Concomitant]
     Dosage: 40 mg, UNK
     Route: 048
  8. PROPRANOLOL [Concomitant]
     Dosage: 20 mg, UNK
     Route: 048

REACTIONS (1)
  - Platelet count decreased [Unknown]
